FAERS Safety Report 5080804-5 (Version None)
Quarter: 2006Q3

REPORT INFORMATION
  Report Type: 
  Country: None (occurrence: None)
  Receive Date: 20060809
  Receipt Date: 20060727
  Transmission Date: 20061208
  Serious: Yes (Hospitalization, Other)
  Sender: FDA-Public Use
  Company Number: HQWYE259310MAY06

PATIENT
  Age: 52 Year
  Sex: Male

DRUGS (45)
  1. RAPAMUNE [Suspect]
     Indication: PROPHYLAXIS AGAINST TRANSPLANT REJECTION
     Dosage: SEE IMAGE
     Route: 048
     Dates: start: 20060426, end: 20060426
  2. RAPAMUNE [Suspect]
     Indication: PROPHYLAXIS AGAINST TRANSPLANT REJECTION
     Dosage: SEE IMAGE
     Route: 048
     Dates: start: 20060427, end: 20060429
  3. RAPAMUNE [Suspect]
     Indication: PROPHYLAXIS AGAINST TRANSPLANT REJECTION
     Dosage: SEE IMAGE
     Route: 048
     Dates: start: 20060430, end: 20060508
  4. RAPAMUNE [Suspect]
     Indication: PROPHYLAXIS AGAINST TRANSPLANT REJECTION
     Dosage: SEE IMAGE
     Route: 048
     Dates: start: 20060509, end: 20060509
  5. RAPAMUNE [Suspect]
     Indication: PROPHYLAXIS AGAINST TRANSPLANT REJECTION
     Dosage: SEE IMAGE
     Route: 048
     Dates: start: 20060510, end: 20060520
  6. CELLCEPT [Concomitant]
  7. . [Concomitant]
  8. SIMULECT [Concomitant]
  9. . [Concomitant]
  10. METHYLPREDNISOLONE [Concomitant]
  11. . [Concomitant]
  12. ARANESP [Concomitant]
  13. . [Concomitant]
  14. RANITIDINE [Concomitant]
  15. SULFAMETHOXAZOLE + TRIMETHOPRIM [Concomitant]
  16. HEXETIDINE (HEXETIDINE) [Concomitant]
  17. NISTATIN (NYSTATIN) [Concomitant]
  18. PREDNISONE TAB [Concomitant]
  19. . [Concomitant]
  20. . [Concomitant]
  21. . [Concomitant]
  22. ALPRAZOLAM [Concomitant]
  23. CEFTRIAXONE [Concomitant]
  24. ACETAMINOPHEN [Concomitant]
  25. . [Concomitant]
  26. . [Concomitant]
  27. . [Concomitant]
  28. DIPYRONE TAB [Concomitant]
  29. . [Concomitant]
  30. . [Concomitant]
  31. RESINCALCIO (CALCIUM POLYSTYRENE SULFONATE) [Concomitant]
  32. DOXAZOSIN (DOXAZOSIN) [Concomitant]
  33. . [Concomitant]
  34. . [Concomitant]
  35. . [Concomitant]
  36. PARAFFIN (PARAFFIN) [Concomitant]
  37. HYDROCORTISONE [Concomitant]
  38. PROGRAF [Concomitant]
  39. . [Concomitant]
  40. . [Concomitant]
  41. . [Concomitant]
  42. AMPICILLIN [Concomitant]
  43. OMEPRAZOLE [Concomitant]
  44. . [Concomitant]
  45. CALCITRIOL [Concomitant]

REACTIONS (8)
  - DRUG TOXICITY [None]
  - HAEMODIALYSIS [None]
  - KIDNEY TRANSPLANT REJECTION [None]
  - RENAL TUBULAR NECROSIS [None]
  - SEROMA [None]
  - URINARY FISTULA [None]
  - URINARY TRACT INFECTION ENTEROCOCCAL [None]
  - URINARY TRACT INFECTION STAPHYLOCOCCAL [None]
